FAERS Safety Report 23517961 (Version 5)
Quarter: 2024Q4

REPORT INFORMATION
  Report Type: Other
  Country: CA (occurrence: CA)
  Receive Date: 20240213
  Receipt Date: 20241227
  Transmission Date: 20250114
  Serious: Yes (Hospitalization, Other)
  Sender: TOLMAR
  Company Number: CA-TOLMAR, INC.-24CA045948

PATIENT
  Age: 84 Year
  Sex: Male

DRUGS (10)
  1. ELIGARD [Suspect]
     Active Substance: LEUPROLIDE ACETATE
     Indication: Prostate cancer
     Dosage: 22.5 MILLIGRAM, Q 3 MONTH
     Route: 058
     Dates: start: 20200807
  2. ELIGARD [Suspect]
     Active Substance: LEUPROLIDE ACETATE
     Dosage: 22.5 MILLIGRAM, Q 3 MONTH
     Route: 058
     Dates: start: 20231019
  3. ELIGARD [Suspect]
     Active Substance: LEUPROLIDE ACETATE
     Dosage: 22.5 MILLIGRAM, Q 3 MONTH
     Route: 058
     Dates: start: 20240111
  4. ELIGARD [Suspect]
     Active Substance: LEUPROLIDE ACETATE
     Dosage: 22.5 MILLIGRAM, Q 3 MONTH
     Route: 058
     Dates: start: 20240405
  5. ELIGARD [Suspect]
     Active Substance: LEUPROLIDE ACETATE
     Dosage: 22.5 MILLIGRAM, Q 3 MONTH
     Route: 058
     Dates: start: 20240702
  6. ELIGARD [Suspect]
     Active Substance: LEUPROLIDE ACETATE
     Dosage: 22.5 MILLIGRAM, Q 3 MONTH
     Route: 058
     Dates: start: 20240924
  7. ELIGARD [Suspect]
     Active Substance: LEUPROLIDE ACETATE
     Dosage: 22.5 MILLIGRAM, Q 3 MONTH
     Route: 058
     Dates: start: 20241207
  8. ELIGARD [Suspect]
     Active Substance: LEUPROLIDE ACETATE
     Indication: Prostate cancer
     Dosage: UNK
  9. UNSPECIFIED INGREDIENT [Suspect]
     Active Substance: UNSPECIFIED INGREDIENT
     Indication: Disease progression
     Dosage: UNK
     Dates: end: 202409
  10. UNSPECIFIED INGREDIENT [Suspect]
     Active Substance: UNSPECIFIED INGREDIENT
     Indication: Prostatic specific antigen increased
     Dosage: UNK

REACTIONS (18)
  - Pleural effusion [Recovering/Resolving]
  - Neutropenia [Unknown]
  - Rib fracture [Recovering/Resolving]
  - Fall [Recovering/Resolving]
  - Prostate cancer [Unknown]
  - Gastroenteritis [Recovering/Resolving]
  - Syncope [Recovering/Resolving]
  - Prostatic specific antigen increased [Not Recovered/Not Resolved]
  - Diarrhoea [Recovering/Resolving]
  - Musculoskeletal chest pain [Unknown]
  - Dehydration [Recovering/Resolving]
  - Cancer fatigue [Not Recovered/Not Resolved]
  - Intentional product use issue [Recovered/Resolved]
  - Muscular weakness [Unknown]
  - Hot flush [Not Recovered/Not Resolved]
  - Injection site pain [Recovered/Resolved]
  - Asthenia [Not Recovered/Not Resolved]
  - Muscle atrophy [Unknown]

NARRATIVE: CASE EVENT DATE: 20240111
